FAERS Safety Report 10037175 (Version 3)
Quarter: 2014Q1

REPORT INFORMATION
  Report Type: Report from Study
  Country: FR (occurrence: FR)
  Receive Date: 20140326
  Receipt Date: 20140327
  Transmission Date: 20141002
  Serious: Yes (Hospitalization, Other)
  Sender: FDA-Public Use
  Company Number: PHHY2013FR155500

PATIENT
  Age: 73 Year
  Sex: Female
  Weight: 53 kg

DRUGS (5)
  1. ACLASTA/ZOLEDRONATE [Suspect]
     Indication: OSTEOPOROSIS
     Dosage: 5 MG
     Route: 042
     Dates: start: 20110407
  2. OMEPRAZOLE [Concomitant]
     Dosage: UNK UKN, UNK
  3. IXPRIM [Concomitant]
     Dosage: UNK UKN, UNK
     Dates: start: 2007
  4. CALCIUM +D3 [Concomitant]
     Dosage: UNK UKN, UNK
     Dates: start: 2011
  5. CHONDRO.SUL.SOD [Concomitant]
     Dosage: UNK UKN, UNK
     Dates: start: 2012

REACTIONS (2)
  - Tibia fracture [Unknown]
  - Fall [Unknown]
